FAERS Safety Report 12728127 (Version 1)
Quarter: 2016Q3

REPORT INFORMATION
  Report Type: Spontaneous
  Country: US (occurrence: US)
  Receive Date: 20160909
  Receipt Date: 20160909
  Transmission Date: 20161109
  Serious: No
  Sender: FDA-Public Use
  Company Number: US-APOTEX-2015AP015161

PATIENT
  Age: 39 Year
  Sex: Male

DRUGS (13)
  1. OXYCODONE [Interacting]
     Active Substance: OXYCODONE
     Dosage: 100 MG, TID (EXTENDED RELEASE)
     Route: 065
  2. PALIFERMIN [Concomitant]
     Active Substance: PALIFERMIN
     Indication: PRODUCT USED FOR UNKNOWN INDICATION
     Dosage: UNK
     Route: 065
  3. OXYCODONE [Interacting]
     Active Substance: OXYCODONE
     Dosage: 30 MG, EVERY TWO HOURS (IMMEDIATE-RELEASE)
     Route: 065
  4. FOSPHENYTOIN SODIUM INJECTION USP [Suspect]
     Active Substance: FOSPHENYTOIN SODIUM
     Indication: CONVULSION PROPHYLAXIS
     Dosage: 300 MG, DAILY
     Route: 042
  5. OXYCODONE [Interacting]
     Active Substance: OXYCODONE
     Indication: BREAKTHROUGH PAIN
     Dosage: 120 MG, TID (EXTENDED RELEASE)
     Route: 065
  6. ETOPOSIDE. [Concomitant]
     Active Substance: ETOPOSIDE
     Indication: PRODUCT USED FOR UNKNOWN INDICATION
     Dosage: UNK
     Route: 065
  7. OXYCODONE [Interacting]
     Active Substance: OXYCODONE
     Dosage: 15 MG, EVERY 4 HOURS (IMMEDIATE-RELEASE; AS NEEDED)
     Route: 065
  8. OXYCODONE [Interacting]
     Active Substance: OXYCODONE
     Dosage: 20 MG, EVERY TWO HOURS (IMMEDIATE-RELEASE)
     Route: 065
  9. OXYCODONE [Interacting]
     Active Substance: OXYCODONE
     Dosage: 60 MG, TID (EXTENDED RELEASE)
     Route: 065
  10. CYCLOPHOSPHAMIDE. [Concomitant]
     Active Substance: CYCLOPHOSPHAMIDE
     Indication: PRODUCT USED FOR UNKNOWN INDICATION
     Dosage: UNK
     Route: 065
  11. TACROLIMUS. [Concomitant]
     Active Substance: TACROLIMUS
     Indication: PRODUCT USED FOR UNKNOWN INDICATION
     Dosage: UNK
     Route: 065
  12. OXYCODONE [Interacting]
     Active Substance: OXYCODONE
     Indication: BREAKTHROUGH PAIN
     Dosage: 40 MG, EVERY TWO HOURS (IMMEDIATE-RELEASE)
     Route: 065
  13. SIROLIMUS. [Concomitant]
     Active Substance: SIROLIMUS
     Indication: PRODUCT USED FOR UNKNOWN INDICATION
     Dosage: UNK
     Route: 065

REACTIONS (3)
  - Drug effect decreased [Recovered/Resolved]
  - Drug interaction [Recovered/Resolved]
  - Pain [Recovered/Resolved]
